FAERS Safety Report 23723472 (Version 1)
Quarter: 2024Q2

REPORT INFORMATION
  Report Type: Spontaneous
  Country: US (occurrence: None)
  Receive Date: 20240409
  Receipt Date: 20240409
  Transmission Date: 20240716
  Serious: No
  Sender: FDA-Public Use
  Company Number: None

PATIENT
  Sex: Male

DRUGS (11)
  1. CINACALCET HYDROCHLORIDE [Suspect]
     Active Substance: CINACALCET HYDROCHLORIDE
     Indication: Hyperparathyroidism secondary
     Dosage: OTHER FREQUENCY : DAILY WITH MEAL;?
     Route: 048
     Dates: start: 20230420
  2. ALPRAZOLAM [Concomitant]
  3. ATORVASTATIN [Concomitant]
  4. AZITHROMYCIN [Concomitant]
  5. CALCITRIOL [Concomitant]
  6. FAMOTIDINE [Concomitant]
     Active Substance: FAMOTIDINE
  7. FLUTICASONE [Concomitant]
  8. HYDRALAZINE [Concomitant]
  9. LIDO/APRILOCN [Concomitant]
  10. METOPROLOL TARTRATE [Concomitant]
     Active Substance: METOPROLOL TARTRATE
  11. NIFEDIPINE [Concomitant]

REACTIONS (1)
  - Death [None]
